FAERS Safety Report 15489101 (Version 1)
Quarter: 2018Q4

REPORT INFORMATION
  Report Type: Spontaneous
  Country: US (occurrence: US)
  Receive Date: 20181011
  Receipt Date: 20181011
  Transmission Date: 20190205
  Serious: No
  Sender: FDA-Public Use
  Company Number: US-PFIZER INC-2018405665

PATIENT
  Age: 63 Year
  Sex: Female
  Weight: 79.38 kg

DRUGS (3)
  1. CELEBREX [Suspect]
     Active Substance: CELECOXIB
     Indication: POLYARTHRITIS
     Dosage: 200 MG, 1X/DAY
     Route: 048
     Dates: start: 20100102
  2. LYRICA [Concomitant]
     Active Substance: PREGABALIN
     Indication: FIBROMYALGIA
     Dosage: 300 MG, 2X/DAY
     Route: 048
     Dates: start: 20151229
  3. NUCYNTA [Concomitant]
     Active Substance: TAPENTADOL HYDROCHLORIDE
     Indication: FIBROMYALGIA
     Dosage: 50 MG, 4X/DAY
     Route: 048
     Dates: start: 20150706

REACTIONS (1)
  - Pain [Unknown]
